FAERS Safety Report 10250342 (Version 1)
Quarter: 2014Q2

REPORT INFORMATION
  Report Type: Spontaneous
  Country: CN (occurrence: CN)
  Receive Date: 20140620
  Receipt Date: 20140620
  Transmission Date: 20141212
  Serious: Yes (Hospitalization, Other)
  Sender: FDA-Public Use
  Company Number: CN-ELI_LILLY_AND_COMPANY-CN201406006891

PATIENT
  Age: 21 Year
  Sex: Female
  Weight: 52 kg

DRUGS (2)
  1. PROZAC [Suspect]
     Indication: DEPRESSION
     Dosage: 20 MG, QD
     Route: 048
     Dates: start: 20131011, end: 20131021
  2. LAMICTAL [Suspect]
     Indication: DEPRESSION
     Dosage: 0.2 G, QID
     Route: 048
     Dates: start: 20131011, end: 20131021

REACTIONS (3)
  - Drug eruption [Recovering/Resolving]
  - Oropharyngeal pain [Unknown]
  - Pruritus [Recovered/Resolved]
